FAERS Safety Report 7055267-0 (Version None)
Quarter: 2010Q4

REPORT INFORMATION
  Report Type: 
  Country: None (occurrence: None)
  Receive Date: 20101021
  Receipt Date: 20101015
  Transmission Date: 20110411
  Serious: Yes (Other)
  Sender: FDA-Public Use
  Company Number: JP-SANOFI-AVENTIS-2010SA063570

PATIENT
  Age: 35 Year
  Sex: Female

DRUGS (2)
  1. FLUOROURACIL [Suspect]
     Indication: COLON CANCER
     Dates: start: 20080716
  2. OXALIPLATIN [Suspect]
     Indication: COLON CANCER
     Dates: start: 20080716

REACTIONS (2)
  - CONVULSION [None]
  - REVERSIBLE POSTERIOR LEUKOENCEPHALOPATHY SYNDROME [None]
